FAERS Safety Report 14907906 (Version 1)
Quarter: 2018Q2

REPORT INFORMATION
  Report Type: Spontaneous
  Country: US (occurrence: US)
  Receive Date: 20180429
  Receipt Date: 20180429
  Transmission Date: 20180711
  Serious: Yes (Life-Threatening, Hospitalization, Other)
  Sender: FDA-Public Use
  Company Number: None

PATIENT
  Age: 28 Year
  Sex: Female
  Weight: 95.85 kg

DRUGS (2)
  1. NUVARING [Suspect]
     Active Substance: ETHINYL ESTRADIOL\ETONOGESTREL
     Indication: CONTRACEPTION
  2. DAILY MULTIVITAMIN [Suspect]
     Active Substance: VITAMINS

REACTIONS (4)
  - Maternal exposure timing unspecified [None]
  - Ectopic pregnancy [None]
  - Internal haemorrhage [None]
  - Fallopian tube operation [None]

NARRATIVE: CASE EVENT DATE: 20170116
